FAERS Safety Report 26070516 (Version 2)
Quarter: 2025Q4

REPORT INFORMATION
  Report Type: Spontaneous
  Country: JP (occurrence: JP)
  Receive Date: 20251120
  Receipt Date: 20251127
  Transmission Date: 20260118
  Serious: Yes (Hospitalization)
  Sender: ELI LILLY AND COMPANY
  Company Number: JP-NShinyaku-EVA202515271ZZLILLY

PATIENT
  Age: 65 Year
  Sex: Female
  Weight: 58.3 kg

DRUGS (3)
  1. TADALAFIL [Suspect]
     Active Substance: TADALAFIL
     Indication: Pulmonary hypertension
     Dosage: 40 MG, DAILY
     Route: 048
  2. SPIRONOLACTONE [Concomitant]
     Active Substance: SPIRONOLACTONE
     Dosage: 25 MG, DAILY
     Route: 048
  3. LEVOTHYROXINE [Concomitant]
     Active Substance: LEVOTHYROXINE
     Dosage: 100 UG, DAILY

REACTIONS (5)
  - Hypoxia [Recovering/Resolving]
  - Atrioventricular block first degree [Unknown]
  - Crepitations [Unknown]
  - Electrocardiogram low voltage [Unknown]
  - Oedema peripheral [Unknown]
